FAERS Safety Report 19761165 (Version 1)
Quarter: 2021Q3

REPORT INFORMATION
  Report Type: Report from Study
  Country: US (occurrence: US)
  Receive Date: 20210830
  Receipt Date: 20210830
  Transmission Date: 20211014
  Serious: No
  Sender: FDA-Public Use
  Company Number: US-IPSEN BIOPHARMACEUTICALS, INC.-2021-20678

PATIENT
  Sex: Female

DRUGS (1)
  1. SOMATULINE DEPOT [Suspect]
     Active Substance: LANREOTIDE ACETATE
     Indication: NEUROENDOCRINE CARCINOMA
     Dosage: 120 MG GIVEN IN EVERY 28 DAYS IN UPPER OUTER BUTTOCKS, ROTATE BETWEEN SIDES
     Route: 058
     Dates: start: 201609

REACTIONS (1)
  - Illness [Not Recovered/Not Resolved]
